FAERS Safety Report 5031494-9 (Version None)
Quarter: 2006Q2

REPORT INFORMATION
  Report Type: 
  Country: None (occurrence: None)
  Receive Date: 20060616
  Receipt Date: 20060605
  Transmission Date: 20061013
  Serious: Yes (Hospitalization)
  Sender: FDA-Public Use
  Company Number: 2006VX000627

PATIENT
  Age: 54 Year
  Sex: Female
  Weight: 55.5 kg

DRUGS (2)
  1. INTERFERON ALFACON-1 (INTERFERON ALFACON-1) (9 MIU) [Suspect]
     Indication: HEPATITIS C
     Dosage: 9 UG; BID; SC
     Route: 058
     Dates: start: 20051205, end: 20060304
  2. RIBAVIRIN [Concomitant]

REACTIONS (2)
  - INJECTION SITE ABSCESS [None]
  - SOFT TISSUE NECROSIS [None]
